FAERS Safety Report 10146046 (Version 1)
Quarter: 2014Q2

REPORT INFORMATION
  Report Type: Spontaneous
  Country: IN (occurrence: IN)
  Receive Date: 20140501
  Receipt Date: 20140501
  Transmission Date: 20141212
  Serious: Yes (Death, Hospitalization)
  Sender: FDA-Public Use
  Company Number: IN-MYLANLABS-2014S1009362

PATIENT
  Age: 60 Year
  Sex: Female

DRUGS (1)
  1. LITHIUM [Suspect]
     Indication: BIPOLAR I DISORDER
     Route: 065

REACTIONS (4)
  - Toxicity to various agents [Fatal]
  - Dysarthria [Unknown]
  - Leukocytosis [Unknown]
  - Cardiac arrest [Unknown]
